FAERS Safety Report 15051759 (Version 21)
Quarter: 2020Q2

REPORT INFORMATION
  Report Type: Report from Study
  Country: US (occurrence: US)
  Receive Date: 20180622
  Receipt Date: 20200520
  Transmission Date: 20200713
  Serious: Yes (Hospitalization, Other)
  Sender: FDA-Public Use
  Company Number: US-B.I. PHARMACEUTICALS,INC./RIDGEFIELD-2018-BI-008207

PATIENT
  Age: 76 Year
  Sex: Male

DRUGS (3)
  1. OFEV [Suspect]
     Active Substance: NINTEDANIB
     Route: 048
  2. OFEV [Suspect]
     Active Substance: NINTEDANIB
     Indication: IDIOPATHIC PULMONARY FIBROSIS
     Route: 048
     Dates: start: 20180115, end: 20180724
  3. OFEV [Suspect]
     Active Substance: NINTEDANIB
     Route: 048
     Dates: start: 20180822

REACTIONS (41)
  - Myalgia [Unknown]
  - Depression [Not Recovered/Not Resolved]
  - Muscle spasms [Not Recovered/Not Resolved]
  - Diarrhoea [Not Recovered/Not Resolved]
  - Cataract [Unknown]
  - Haemorrhoids [Unknown]
  - Tooth abscess [Unknown]
  - Flatulence [Not Recovered/Not Resolved]
  - Intestinal haemorrhage [Unknown]
  - Upper-airway cough syndrome [Unknown]
  - Seasonal allergy [Unknown]
  - Dizziness [Not Recovered/Not Resolved]
  - Nasal congestion [Unknown]
  - Pain [Not Recovered/Not Resolved]
  - Nausea [Not Recovered/Not Resolved]
  - Dyspnoea [Unknown]
  - Cough [Unknown]
  - Diverticulitis [Unknown]
  - Diarrhoea [Recovered/Resolved]
  - Dyspnoea exertional [Unknown]
  - Headache [Unknown]
  - PO2 decreased [Not Recovered/Not Resolved]
  - Productive cough [Unknown]
  - Abdominal pain upper [Recovered/Resolved]
  - Abdominal pain upper [Unknown]
  - Eructation [Unknown]
  - Dyspnoea [Not Recovered/Not Resolved]
  - Internal haemorrhage [Unknown]
  - Mucosal haemorrhage [Unknown]
  - Nausea [Recovered/Resolved]
  - Rhinorrhoea [Not Recovered/Not Resolved]
  - Rectal haemorrhage [Recovered/Resolved]
  - Musculoskeletal chest pain [Unknown]
  - Alopecia [Not Recovered/Not Resolved]
  - Weight decreased [Not Recovered/Not Resolved]
  - Haematochezia [Not Recovered/Not Resolved]
  - Feeling abnormal [Unknown]
  - Sneezing [Unknown]
  - Nausea [Not Recovered/Not Resolved]
  - Decreased appetite [Not Recovered/Not Resolved]
  - Oxygen saturation decreased [Unknown]

NARRATIVE: CASE EVENT DATE: 201606
